FAERS Safety Report 5380045-8 (Version None)
Quarter: 2007Q3

REPORT INFORMATION
  Report Type: 
  Country: None (occurrence: None)
  Receive Date: 20070706
  Receipt Date: 20070507
  Transmission Date: 20080115
  Serious: No
  Sender: FDA-Public Use
  Company Number: A0646088A

PATIENT
  Age: 43 Year
  Sex: Female

DRUGS (3)
  1. TYKERB [Suspect]
     Dosage: 1250MG PER DAY
     Route: 048
     Dates: start: 20070329
  2. EFFEXOR [Concomitant]
  3. LEXAPRO [Concomitant]

REACTIONS (5)
  - CRYING [None]
  - DEPRESSION [None]
  - DIARRHOEA [None]
  - EMOTIONAL DISORDER [None]
  - MUSCLE SPASMS [None]
